FAERS Safety Report 9645390 (Version 1)
Quarter: 2013Q4

REPORT INFORMATION
  Report Type: Spontaneous
  Country: US (occurrence: US)
  Receive Date: 20131025
  Receipt Date: 20131025
  Transmission Date: 20140711
  Serious: Yes (Death)
  Sender: FDA-Public Use
  Company Number: US-INCYTE CORPORATION-2013IN002476

PATIENT
  Sex: Male

DRUGS (10)
  1. JAKAFI [Suspect]
     Dosage: 15 MG, BID
     Route: 048
     Dates: start: 20130821
  2. HYDROXYUREA [Concomitant]
  3. TRAZODONE [Concomitant]
  4. EFFEXOR [Concomitant]
  5. PREDNISONE [Concomitant]
  6. ALLOPURINOL [Concomitant]
  7. LOSARTAN [Concomitant]
  8. POTASSIUM [Concomitant]
  9. VITAMIN D [Concomitant]
  10. TORSEMIDE [Concomitant]

REACTIONS (1)
  - Death [Fatal]
